FAERS Safety Report 15197012 (Version 4)
Quarter: 2018Q4

REPORT INFORMATION
  Report Type: Spontaneous
  Country: DE (occurrence: DE)
  Receive Date: 20180725
  Receipt Date: 20181205
  Transmission Date: 20190204
  Serious: Yes (Death, Life-Threatening, Hospitalization)
  Sender: FDA-Public Use
  Company Number: PHHY2003DE006002

PATIENT
  Age: 78 Year
  Sex: Female
  Weight: 80 kg

DRUGS (4)
  1. ISOSORBIDE MONONITRATE. [Suspect]
     Active Substance: ISOSORBIDE MONONITRATE
     Indication: INTENTIONAL OVERDOSE
     Dosage: 2 G, QD
     Route: 048
  2. MIRTAZAPINE. [Suspect]
     Active Substance: MIRTAZAPINE
     Indication: DEPRESSION
     Dosage: 600 MG, QD
     Route: 048
  3. BENAZEPRIL [Suspect]
     Active Substance: BENAZEPRIL HYDROCHLORIDE
     Indication: SUICIDE ATTEMPT
     Dosage: 250 MG, QD
     Route: 048
  4. AMLODIPINE [Suspect]
     Active Substance: AMLODIPINE BESYLATE
     Indication: SUICIDE ATTEMPT
     Dosage: 430 MG, QD
     Route: 048

REACTIONS (7)
  - Cardiovascular insufficiency [Recovering/Resolving]
  - Intestinal ischaemia [Fatal]
  - Completed suicide [Fatal]
  - Cardiac failure [Fatal]
  - Vasodilatation [Fatal]
  - Shock [Fatal]
  - Intentional overdose [Fatal]
